FAERS Safety Report 21832487 (Version 1)
Quarter: 2023Q1

REPORT INFORMATION
  Report Type: Spontaneous
  Country: US (occurrence: US)
  Receive Date: 20230106
  Receipt Date: 20230106
  Transmission Date: 20230418
  Serious: No
  Sender: FDA-Public Use
  Company Number: US-ALLERGAN-2234290US

PATIENT
  Sex: Female

DRUGS (5)
  1. QULIPTA [Suspect]
     Active Substance: ATOGEPANT
     Indication: Migraine
     Dosage: 60 MG, QD
     Route: 048
  2. AMITRIPTYLINE [Concomitant]
     Active Substance: AMITRIPTYLINE
  3. ZONISAMIDE [Concomitant]
     Active Substance: ZONISAMIDE
  4. LIPITOR [Concomitant]
     Active Substance: ATORVASTATIN CALCIUM
  5. METOPROLOL [Concomitant]
     Active Substance: METOPROLOL

REACTIONS (7)
  - Nodule [Recovered/Resolved]
  - Sarcoidosis [Unknown]
  - Disease progression [Unknown]
  - Lung disorder [Unknown]
  - Lymphadenopathy [Unknown]
  - Hypophagia [Unknown]
  - Stress [Unknown]

NARRATIVE: CASE EVENT DATE: 20220101
